FAERS Safety Report 21837820 (Version 2)
Quarter: 2023Q1

REPORT INFORMATION
  Report Type: Spontaneous
  Country: US (occurrence: US)
  Receive Date: 20230109
  Receipt Date: 20230119
  Transmission Date: 20230417
  Serious: Yes (Other)
  Sender: FDA-Public Use
  Company Number: US-PFIZER INC-PV202300003025

PATIENT
  Age: 60 Year
  Sex: Female

DRUGS (1)
  1. IBRANCE [Suspect]
     Active Substance: PALBOCICLIB
     Dosage: 125 MG

REACTIONS (6)
  - Transfusion [Unknown]
  - Platelet transfusion [Unknown]
  - Neoplasm progression [Unknown]
  - Lethargy [Unknown]
  - Epistaxis [Unknown]
  - Rhinorrhoea [Unknown]
